FAERS Safety Report 13789555 (Version 1)
Quarter: 2017Q3

REPORT INFORMATION
  Report Type: Spontaneous
  Country: JP (occurrence: JP)
  Receive Date: 20170725
  Receipt Date: 20170725
  Transmission Date: 20171127
  Serious: Yes (Other)
  Sender: FDA-Public Use
  Company Number: JP-CIPLA LTD.-2017JP13241

PATIENT

DRUGS (3)
  1. DOCETAXEL. [Suspect]
     Active Substance: DOCETAXEL
     Indication: METASTASES TO PELVIS
     Dosage: UNK, SIX CYCLES
     Route: 065
  2. GEMCITABINE [Suspect]
     Active Substance: GEMCITABINE\GEMCITABINE HYDROCHLORIDE
     Indication: METASTASES TO PELVIS
     Dosage: UNK, SIX CYCLES
     Route: 065
  3. PAZOPANIB [Suspect]
     Active Substance: PAZOPANIB
     Indication: METASTASES TO PELVIS
     Dosage: 800 MG, PER DAY
     Route: 048

REACTIONS (3)
  - Disease recurrence [Not Recovered/Not Resolved]
  - Metastases to central nervous system [Recovered/Resolved]
  - Metastases to pelvis [Unknown]
